FAERS Safety Report 25477351 (Version 1)
Quarter: 2025Q2

REPORT INFORMATION
  Report Type: Spontaneous
  Country: HR (occurrence: HR)
  Receive Date: 20250625
  Receipt Date: 20250625
  Transmission Date: 20250716
  Serious: Yes (Other)
  Sender: GLAXOSMITHKLINE
  Company Number: None

PATIENT
  Age: 74 Year
  Sex: Female
  Weight: 50 kg

DRUGS (8)
  1. FLUTICASONE FUROATE\VILANTEROL TRIFENATATE [Suspect]
     Active Substance: FLUTICASONE FUROATE\VILANTEROL TRIFENATATE
     Indication: Product used for unknown indication
     Dosage: UNK, QD (1X/DAY)
     Route: 065
  2. ELIQUIS [Suspect]
     Active Substance: APIXABAN
     Indication: Product used for unknown indication
     Dosage: 2.5 MG, BID
     Route: 065
  3. ELIQUIS [Suspect]
     Active Substance: APIXABAN
     Dosage: 5 MG, BID
     Route: 065
  4. ELIQUIS [Suspect]
     Active Substance: APIXABAN
     Dosage: 5 MG, BID
     Route: 065
  5. NEBIVOLOL [Suspect]
     Active Substance: NEBIVOLOL
     Indication: Product used for unknown indication
     Dosage: 5 MG, QD (1X/DAY)
     Route: 065
  6. PROPAFENONE [Suspect]
     Active Substance: PROPAFENONE
     Indication: Product used for unknown indication
     Dosage: 150 MG, BID (2X/DAY)
     Route: 065
  7. ATORVASTATIN CALCIUM [Suspect]
     Active Substance: ATORVASTATIN CALCIUM
     Indication: Product used for unknown indication
     Dosage: 40 MG, QD (1X/DAY)
     Route: 065
  8. DIGITALIS [Concomitant]
     Active Substance: DIGITALIS
     Indication: Product used for unknown indication
     Route: 065

REACTIONS (3)
  - Paroxysmal arrhythmia [Unknown]
  - Atrial tachycardia [Unknown]
  - Deep vein thrombosis [Unknown]

NARRATIVE: CASE EVENT DATE: 20250301
